FAERS Safety Report 18869774 (Version 4)
Quarter: 2021Q2

REPORT INFORMATION
  Report Type: Other
  Country: SI (occurrence: SI)
  Receive Date: 20210209
  Receipt Date: 20210420
  Transmission Date: 20210717
  Serious: Yes (Other)
  Sender: FDA-Public Use
  Company Number: SI-ROCHE-2758043

PATIENT
  Age: 16 Year
  Sex: Male
  Weight: 37.2 kg

DRUGS (1)
  1. RISDIPLAM. [Suspect]
     Active Substance: RISDIPLAM
     Indication: SPINAL MUSCULAR ATROPHY
     Route: 048
     Dates: start: 20201230

REACTIONS (13)
  - Oxygen saturation decreased [Recovered/Resolved]
  - Urinary retention [Recovered/Resolved]
  - Tachycardia [Unknown]
  - Abdominal pain upper [Not Recovered/Not Resolved]
  - Erythema [Unknown]
  - Tachycardia [Recovered/Resolved]
  - Aspiration [Not Recovered/Not Resolved]
  - Rash [Recovered/Resolved]
  - Alanine aminotransferase increased [Unknown]
  - Heart rate increased [Unknown]
  - Liver function test increased [Recovered/Resolved]
  - Erythema [Recovered/Resolved]
  - Hyperhidrosis [Unknown]

NARRATIVE: CASE EVENT DATE: 20210107
